FAERS Safety Report 12761466 (Version 2)
Quarter: 2016Q3

REPORT INFORMATION
  Report Type: Report from Study
  Country: ES (occurrence: ES)
  Receive Date: 20160920
  Receipt Date: 20160924
  Transmission Date: 20161109
  Serious: Yes (Death, Hospitalization, Other)
  Sender: FDA-Public Use
  Company Number: ES-AMGEN-ESPNI2016126214

PATIENT
  Age: 72 Year
  Sex: Female

DRUGS (2)
  1. DEXAMETHASONE. [Concomitant]
     Active Substance: DEXAMETHASONE
     Dosage: UNK, QWK
     Route: 048
     Dates: start: 20160822, end: 20160905
  2. CARFILZOMIB [Suspect]
     Active Substance: CARFILZOMIB
     Indication: PLASMA CELL MYELOMA
     Dosage: 20 MG, 2 TIMES/WK FOR THREE WEEKS
     Route: 042
     Dates: start: 20160830, end: 20160830

REACTIONS (3)
  - Coma [Fatal]
  - Pyrexia [Fatal]
  - Encephalopathy [Unknown]

NARRATIVE: CASE EVENT DATE: 20160904
